FAERS Safety Report 10544860 (Version 5)
Quarter: 2014Q4

REPORT INFORMATION
  Report Type: Spontaneous
  Country: US (occurrence: US)
  Receive Date: 20141027
  Receipt Date: 20141112
  Transmission Date: 20150529
  Serious: Yes (Death, Hospitalization)
  Sender: FDA-Public Use
  Company Number: US-ACTELION-A-NJ2014-105796

PATIENT
  Age: 73 Year
  Sex: Female

DRUGS (7)
  1. TRACLEER [Suspect]
     Active Substance: BOSENTAN\BOSENTAN MONOHYDRATE
     Indication: PULMONARY ARTERIAL HYPERTENSION
     Route: 048
  2. OPSUMIT [Suspect]
     Active Substance: MACITENTAN
     Indication: PULMONARY ARTERIAL HYPERTENSION
     Dosage: 10 MG, QD
     Route: 048
     Dates: start: 20140523, end: 20140919
  3. VENTAVIS [Suspect]
     Active Substance: ILOPROST
     Indication: PULMONARY ARTERIAL HYPERTENSION
     Dosage: 5 MCG, 4-6X/ DAY
     Route: 055
     Dates: end: 20141026
  4. DIGOXIN. [Concomitant]
     Active Substance: DIGOXIN
  5. COUMADIN [Concomitant]
     Active Substance: WARFARIN SODIUM
     Dosage: 2.5 MG, UNK
     Route: 048
  6. LETAIRIS [Concomitant]
     Active Substance: AMBRISENTAN
     Dosage: 10 MG, UNK
     Route: 048
     Dates: start: 201409, end: 20141026
  7. OXYGEN. [Concomitant]
     Active Substance: OXYGEN
     Dosage: 4 L, UNK

REACTIONS (12)
  - Lung neoplasm malignant [Fatal]
  - Bone cancer [Fatal]
  - Disease progression [Fatal]
  - Pancreatic carcinoma [Fatal]
  - Pulmonary arterial hypertension [Fatal]
  - Oxygen saturation decreased [Unknown]
  - Hepatic cancer [Fatal]
  - Liver function test abnormal [Unknown]
  - Colon cancer [Fatal]
  - Neoplasm malignant [Fatal]
  - Malignant neoplasm of unknown primary site [Fatal]
  - Endometrial cancer [Fatal]
